FAERS Safety Report 13674317 (Version 3)
Quarter: 2017Q3

REPORT INFORMATION
  Report Type: Report from Study
  Country: DE (occurrence: DE)
  Receive Date: 20170621
  Receipt Date: 20170719
  Transmission Date: 20171127
  Serious: No
  Sender: FDA-Public Use
  Company Number: DE-B.I. PHARMACEUTICALS,INC./RIDGEFIELD-2017-BI-022364

PATIENT
  Age: 71 Year
  Sex: Female
  Weight: 89 kg

DRUGS (8)
  1. DOCETAXEL. [Suspect]
     Active Substance: DOCETAXEL
     Indication: LUNG ADENOCARCINOMA
     Route: 042
     Dates: start: 20170411, end: 20170411
  2. METFORMIN [Concomitant]
     Active Substance: METFORMIN HYDROCHLORIDE
     Indication: DIABETES MELLITUS
     Route: 048
  3. QUINAPLUS [Concomitant]
     Indication: HYPERTENSION
     Route: 048
  4. BISOBETA [Concomitant]
     Indication: HYPERTENSION
     Route: 048
  5. DEXAMETHASONE. [Concomitant]
     Active Substance: DEXAMETHASONE
     Route: 048
     Dates: start: 20170412, end: 20170412
  6. XELEVIA [Concomitant]
     Active Substance: SITAGLIPTIN PHOSPHATE
     Indication: DIABETES MELLITUS
     Route: 048
  7. BIBF 1120 [Suspect]
     Active Substance: NINTEDANIB
     Indication: LUNG ADENOCARCINOMA
     Route: 048
     Dates: start: 20170412, end: 20170417
  8. DEXAMETHASONE. [Concomitant]
     Active Substance: DEXAMETHASONE
     Indication: PROPHYLAXIS
     Route: 048
     Dates: start: 20170410, end: 20170410

REACTIONS (7)
  - Alanine aminotransferase increased [Recovered/Resolved]
  - Abdominal rigidity [Unknown]
  - Diarrhoea [Recovered/Resolved]
  - Gamma-glutamyltransferase increased [Recovered/Resolved]
  - Abdominal rigidity [Recovered/Resolved]
  - Aspartate aminotransferase increased [Recovered/Resolved]
  - Gamma-glutamyltransferase increased [Recovered/Resolved]

NARRATIVE: CASE EVENT DATE: 20170412
